FAERS Safety Report 22246345 (Version 1)
Quarter: 2023Q2

REPORT INFORMATION
  Report Type: Spontaneous
  Country: CA (occurrence: CA)
  Receive Date: 20230424
  Receipt Date: 20230424
  Transmission Date: 20230721
  Serious: Yes (Other)
  Sender: FDA-Public Use
  Company Number: CA-PFIZER INC-202201290186

PATIENT
  Age: 62 Year
  Sex: Female
  Weight: 61 kg

DRUGS (7)
  1. RUXIENCE [Suspect]
     Active Substance: RITUXIMAB-PVVR
     Indication: Antineutrophil cytoplasmic antibody
     Dosage: 500 MG DAY 1500MG DAY 15 THEN Q 6 MONTHS X 3 DOSES
     Route: 042
     Dates: start: 20220915
  2. RUXIENCE [Suspect]
     Active Substance: RITUXIMAB-PVVR
     Indication: Glomerulonephritis
     Dosage: 500 MG RETREATMENT AFTER 6 MONTHS (1500MG DAY 15 THEN Q 6 MONTHS X 3 DOSES)
     Route: 042
     Dates: start: 20230418
  3. RUXIENCE [Suspect]
     Active Substance: RITUXIMAB-PVVR
     Indication: Anti-neutrophil cytoplasmic antibody positive vasculitis
  4. HYDROXYCHLOROQUINE SULFATE [Concomitant]
     Active Substance: HYDROXYCHLOROQUINE SULFATE
     Dosage: 1 DF
  5. EZETIMIBE [Concomitant]
     Active Substance: EZETIMIBE
     Dosage: 1 DF
  6. JANUMET [Concomitant]
     Active Substance: METFORMIN HYDROCHLORIDE\SITAGLIPTIN PHOSPHATE
     Dosage: 1 DF
  7. SYNTHROID [Concomitant]
     Active Substance: LEVOTHYROXINE SODIUM
     Dosage: 1 DF

REACTIONS (4)
  - Throat irritation [Recovered/Resolved]
  - Oral pruritus [Recovered/Resolved]
  - Tooth extraction [Unknown]
  - Off label use [Unknown]

NARRATIVE: CASE EVENT DATE: 20230418
